FAERS Safety Report 9284332 (Version 1)
Quarter: 2013Q2

REPORT INFORMATION
  Report Type: Spontaneous
  Country: CN (occurrence: CN)
  Receive Date: 20130510
  Receipt Date: 20130510
  Transmission Date: 20140414
  Serious: Yes (Hospitalization)
  Sender: FDA-Public Use
  Company Number: CN-ABBOTT-13X-035-1086572-00

PATIENT
  Age: 23 Year
  Sex: Female

DRUGS (1)
  1. DEPAKINE [Suspect]
     Indication: PROPHYLAXIS
     Route: 048
     Dates: start: 20110801, end: 20110925

REACTIONS (6)
  - Local swelling [Recovered/Resolved]
  - Rash vesicular [Recovered/Resolved]
  - Pruritus [Recovered/Resolved]
  - Pyrexia [Recovered/Resolved]
  - Skin erosion [Recovered/Resolved]
  - Rash [Recovered/Resolved]
